APPROVED DRUG PRODUCT: VEPESID
Active Ingredient: ETOPOSIDE
Strength: 100MG
Dosage Form/Route: CAPSULE;ORAL
Application: N019557 | Product #002
Applicant: ONESOURCE SPECIALTY PTE LTD
Approved: Dec 30, 1986 | RLD: Yes | RS: No | Type: DISCN